FAERS Safety Report 8398248-7 (Version None)
Quarter: 2012Q2

REPORT INFORMATION
  Report Type: 
  Country: None (occurrence: None)
  Receive Date: 20120525
  Receipt Date: 20120511
  Transmission Date: 20120825
  Serious: Yes (Other)
  Sender: FDA-Public Use
  Company Number: 2012AP001344

PATIENT
  Age: 70 Year
  Sex: Female
  Weight: 53.5244 kg

DRUGS (2)
  1. LATANOPROST [Suspect]
     Indication: GLAUCOMA
     Dosage: OPH
     Route: 047
  2. XALATAN [Suspect]
     Indication: GLAUCOMA
     Dosage: 2 GTT; QD; OPH
     Route: 047
     Dates: start: 20111101

REACTIONS (4)
  - GROWTH OF EYELASHES [None]
  - ALOPECIA [None]
  - INFLUENZA [None]
  - CHEST DISCOMFORT [None]
